FAERS Safety Report 18618267 (Version 1)
Quarter: 2020Q4

REPORT INFORMATION
  Report Type: Spontaneous
  Country: JP (occurrence: JP)
  Receive Date: 20201215
  Receipt Date: 20201215
  Transmission Date: 20210114
  Serious: Yes (Other)
  Sender: FDA-Public Use
  Company Number: JP-ASTRAZENECA-2020SF64782

PATIENT
  Age: 43 Year
  Sex: Female

DRUGS (4)
  1. MUCOSOLVAN [Concomitant]
     Active Substance: AMBROXOL HYDROCHLORIDE
     Dosage: 45 MG, NUMBER OF SEPARATE DOSAGES UNKNOWN
     Route: 065
     Dates: start: 20201201
  2. COUGHCODE-N [Concomitant]
     Active Substance: ACETAMINOPHEN\BROMISOVAL\DIHYDROCODEINE PHOSPHATE\DIPHENHYDRAMINE SALICYLATE\DYPHYLLINE\METHYLEPHEDRINE HYDROCHLORIDE, (+/-)-
     Dosage: 6.0DF UNKNOWN
     Route: 048
     Dates: start: 20201201
  3. SYMBICORT [Suspect]
     Active Substance: BUDESONIDE\FORMOTEROL FUMARATE DIHYDRATE
     Indication: ASTHMA
     Dosage: 2 DF, TWO TIMES A DAY
     Route: 055
     Dates: start: 20201201, end: 20201204
  4. ONON [Concomitant]
     Active Substance: PRANLUKAST
     Indication: ASTHMA
     Dosage: 4.0DF UNKNOWN
     Route: 048
     Dates: start: 20201126

REACTIONS (2)
  - Urticaria [Recovered/Resolved]
  - Stomatitis [Recovered/Resolved]

NARRATIVE: CASE EVENT DATE: 20201203
